FAERS Safety Report 8857771 (Version 1)
Quarter: 2012Q4

REPORT INFORMATION
  Report Type: 
  Country: DE (occurrence: DE)
  Receive Date: 20121024
  Receipt Date: 20121024
  Transmission Date: 20130627
  Serious: Yes (Death)
  Sender: FDA-Public Use
  Company Number: DE-BAXTER-2012BAX021103

PATIENT
  Sex: Female

DRUGS (3)
  1. ENDOXAN 1G [Suspect]
     Indication: METASTATIC BREAST CANCER
  2. EPIRUBICIN [Suspect]
     Indication: METASTATIC BREAST CANCER
  3. TRASTUZUMAB [Suspect]
     Indication: METASTATIC BREAST CANCER
     Route: 042

REACTIONS (1)
  - Cerebrovascular accident [Fatal]
